FAERS Safety Report 7648566-2 (Version None)
Quarter: 2011Q3

REPORT INFORMATION
  Report Type: 
  Country: None (occurrence: None)
  Receive Date: 20110801
  Receipt Date: 20110720
  Transmission Date: 20111222
  Serious: Yes (Hospitalization)
  Sender: FDA-Public Use
  Company Number: PHFR2011GB03618

PATIENT
  Sex: Male

DRUGS (7)
  1. CLOZAPINE [Suspect]
     Indication: SCHIZOPHRENIA
     Route: 048
     Dates: start: 20110511, end: 20110609
  2. LOVAZA [Concomitant]
     Dosage: 2 TAB/DAY
  3. SENNA [Concomitant]
     Indication: CONSTIPATION
     Dosage: 2 TAB/DAY
     Route: 048
  4. OLANZAPINE [Concomitant]
     Indication: PSYCHOTIC DISORDER
     Dosage: 20 MG/DAY
     Route: 048
  5. CLONAZEPAM [Concomitant]
     Dosage: 0.5 MG/DAY
  6. LITHIUM CARBONATE [Concomitant]
     Indication: AFFECTIVE DISORDER
     Dosage: 800 NG/DAY
     Route: 048
  7. ATORVASTATIN [Concomitant]
     Indication: HYPERLIPIDAEMIA
     Dosage: 20 MG/DAY
     Route: 048

REACTIONS (8)
  - ATRIAL FLUTTER [None]
  - MYOCARDITIS [None]
  - ELECTROCARDIOGRAM T WAVE INVERSION [None]
  - TACHYCARDIA [None]
  - DYSPNOEA [None]
  - PALPITATIONS [None]
  - BUNDLE BRANCH BLOCK LEFT [None]
  - C-REACTIVE PROTEIN DECREASED [None]
